FAERS Safety Report 5464237-5 (Version None)
Quarter: 2007Q3

REPORT INFORMATION
  Report Type: 
  Country: None (occurrence: None)
  Receive Date: 20070921
  Receipt Date: 20070914
  Transmission Date: 20080115
  Serious: Yes (Death, Hospitalization)
  Sender: FDA-Public Use
  Company Number: JP-BRISTOL-MYERS SQUIBB COMPANY-13914866

PATIENT
  Age: 77 Year
  Sex: Male

DRUGS (1)
  1. PRAVASTATIN [Suspect]
     Indication: HYPERLIPIDAEMIA
     Dates: start: 20060401, end: 20060701

REACTIONS (2)
  - INTERSTITIAL LUNG DISEASE [None]
  - POLYMYOSITIS [None]
